FAERS Safety Report 23939748 (Version 1)
Quarter: 2024Q2

REPORT INFORMATION
  Report Type: Report from Study
  Country: US (occurrence: US)
  Receive Date: 20240605
  Receipt Date: 20240605
  Transmission Date: 20240716
  Serious: Yes (Other)
  Sender: FDA-Public Use
  Company Number: US-ABBVIE-5783849

PATIENT
  Sex: Female

DRUGS (1)
  1. RINVOQ [Suspect]
     Active Substance: UPADACITINIB
     Indication: Product used for unknown indication
     Route: 048

REACTIONS (5)
  - Plasma cell myeloma [Recovering/Resolving]
  - Peripheral swelling [Recovering/Resolving]
  - Adverse drug reaction [Recovering/Resolving]
  - Joint stiffness [Recovering/Resolving]
  - Neuropathy peripheral [Recovering/Resolving]
